FAERS Safety Report 6108242-4 (Version None)
Quarter: 2009Q1

REPORT INFORMATION
  Report Type: 
  Country: None (occurrence: None)
  Receive Date: 20090309
  Receipt Date: 20090305
  Transmission Date: 20090719
  Serious: Yes (Other)
  Sender: FDA-Public Use
  Company Number: CA-WYE-G03261109

PATIENT
  Age: 35 Year
  Sex: Male

DRUGS (5)
  1. VENLAFAXINE HYDROCHLORIDE [Suspect]
     Route: 048
     Dates: start: 20020101, end: 20071101
  2. PREDNISONE [Concomitant]
     Dosage: UNKNOWN
  3. TYLENOL W/ CODEINE [Concomitant]
  4. ZYPREXA [Concomitant]
     Route: 048
     Dates: start: 20020101
  5. ATENOLOL [Concomitant]
     Route: 048
     Dates: start: 20070101

REACTIONS (2)
  - ARTHRALGIA [None]
  - OSTEONECROSIS [None]
